FAERS Safety Report 11857087 (Version 2)
Quarter: 2016Q1

REPORT INFORMATION
  Report Type: Spontaneous
  Country: US (occurrence: US)
  Receive Date: 20151221
  Receipt Date: 20160115
  Transmission Date: 20160526
  Serious: No
  Sender: FDA-Public Use
  Company Number: US-PFIZER INC-2015421923

PATIENT
  Age: 85 Year
  Sex: Female
  Weight: 46.27 kg

DRUGS (8)
  1. AMLODIPINE BESYLATE. [Concomitant]
     Active Substance: AMLODIPINE BESYLATE
     Indication: BLOOD PRESSURE ABNORMAL
     Dosage: 5MG, ONE A DAY
     Route: 048
     Dates: start: 2014
  2. BYSTOLIC [Concomitant]
     Active Substance: NEBIVOLOL HYDROCHLORIDE
     Indication: BLOOD PRESSURE ABNORMAL
     Dosage: 5MG, ONE A DAY
     Route: 048
     Dates: start: 2014
  3. TRAMADOL. [Concomitant]
     Active Substance: TRAMADOL
     Indication: PAIN IN EXTREMITY
     Dosage: 50MG, TAKE ONE EVERY 4 HOURS, IF NEEDED FOR PAIN
     Dates: start: 201510
  4. TRAMADOL. [Concomitant]
     Active Substance: TRAMADOL
     Indication: PAIN
  5. LYRICA [Suspect]
     Active Substance: PREGABALIN
     Indication: NEUROPATHY PERIPHERAL
     Dosage: ONE 25MG CAPSULE TWICE DAILY
     Route: 048
     Dates: start: 201511, end: 20151129
  6. LORAZEPAM. [Concomitant]
     Active Substance: LORAZEPAM
     Indication: ANXIETY
     Dosage: 2MG, TAKE ONE IN THE MORNING AND TWO AT BEDTIME
     Route: 048
  7. ROPINIROLE. [Concomitant]
     Active Substance: ROPINIROLE
     Indication: RESTLESS LEGS SYNDROME
     Dosage: 1 TABLET THREE TIMES A DAY
     Route: 048
  8. LYRICA [Suspect]
     Active Substance: PREGABALIN
     Indication: NEURALGIA

REACTIONS (3)
  - Hair disorder [Not Recovered/Not Resolved]
  - Alopecia [Recovering/Resolving]
  - Hair growth abnormal [Recovering/Resolving]

NARRATIVE: CASE EVENT DATE: 201511
